FAERS Safety Report 10086406 (Version 3)
Quarter: 2014Q2

REPORT INFORMATION
  Report Type: Report from Study
  Country: US (occurrence: US)
  Receive Date: 20140418
  Receipt Date: 20140515
  Transmission Date: 20141212
  Serious: Yes (Other)
  Sender: FDA-Public Use
  Company Number: US-SA-2014SA045100

PATIENT
  Age: 33 Year
  Sex: Female

DRUGS (2)
  1. AUBAGIO [Suspect]
     Indication: MULTIPLE SCLEROSIS
     Route: 048
     Dates: start: 20140211
  2. SOLUMEDROL [Concomitant]

REACTIONS (4)
  - Disability [Unknown]
  - Abasia [Unknown]
  - Crying [Not Recovered/Not Resolved]
  - Frustration [Not Recovered/Not Resolved]
